FAERS Safety Report 9092792 (Version 1)
Quarter: 2013Q1

REPORT INFORMATION
  Report Type: Report from Study
  Country: US (occurrence: US)
  Receive Date: 20130131
  Receipt Date: 20130131
  Transmission Date: 20140127
  Serious: Yes (Other)
  Sender: FDA-Public Use
  Company Number: US-ABBOTT-12P-163-0998367-00

PATIENT
  Age: 63 Year
  Sex: Female

DRUGS (6)
  1. HUMIRA [Suspect]
     Route: 058
     Dates: start: 2009
  2. HUMIRA [Suspect]
  3. CYTOMEL [Concomitant]
     Indication: HORMONE REPLACEMENT THERAPY
  4. SYNTHROID [Concomitant]
     Indication: PRODUCT USED FOR UNKNOWN INDICATION
  5. PROZAC [Concomitant]
     Indication: CEREBRAL DISORDER
  6. ATARAX [Concomitant]
     Indication: ANXIETY

REACTIONS (4)
  - Surgery [Recovered/Resolved]
  - Device malfunction [Unknown]
  - Incorrect dose administered [Unknown]
  - Injection site pain [Unknown]
